FAERS Safety Report 10292810 (Version 4)
Quarter: 2014Q4

REPORT INFORMATION
  Report Type: Spontaneous
  Country: US (occurrence: US)
  Receive Date: 20140710
  Receipt Date: 20141006
  Transmission Date: 20150528
  Serious: Yes (Other)
  Sender: FDA-Public Use
  Company Number: US-GILEAD-2014-0108092

PATIENT
  Age: 85 Year
  Sex: Female

DRUGS (2)
  1. LETAIRIS [Suspect]
     Active Substance: AMBRISENTAN
     Indication: PULMONARY HYPERTENSION
     Dosage: 5 MG, QD
     Route: 065
     Dates: start: 20140313
  2. LETAIRIS [Suspect]
     Active Substance: AMBRISENTAN
     Indication: SARCOIDOSIS

REACTIONS (9)
  - Pneumonia [Unknown]
  - Cough [Unknown]
  - Headache [Unknown]
  - Musculoskeletal chest pain [Unknown]
  - Musculoskeletal pain [Unknown]
  - Productive cough [Unknown]
  - Excessive exercise [Unknown]
  - Bronchitis [Unknown]
  - Pyrexia [Unknown]

NARRATIVE: CASE EVENT DATE: 201406
